FAERS Safety Report 25361823 (Version 2)
Quarter: 2025Q3

REPORT INFORMATION
  Report Type: Other
  Country: GB (occurrence: GB)
  Receive Date: 20250527
  Receipt Date: 20250701
  Transmission Date: 20251020
  Serious: Yes (Life-Threatening, Hospitalization, Other)
  Sender: MACLEODS
  Company Number: None

PATIENT

DRUGS (1)
  1. RIVAROXABAN [Suspect]
     Active Substance: RIVAROXABAN
     Indication: Atrial fibrillation
     Dosage: 20MG OD
     Route: 065

REACTIONS (6)
  - Aneurysm [Unknown]
  - Arteriovenous malformation [Unknown]
  - Haemorrhage intracranial [Recovering/Resolving]
  - Subarachnoid haemorrhage [Unknown]
  - Haemoglobin decreased [Unknown]
  - Hypertension [Unknown]

NARRATIVE: CASE EVENT DATE: 20250511
